FAERS Safety Report 10258428 (Version 3)
Quarter: 2014Q4

REPORT INFORMATION
  Report Type: Spontaneous
  Country: US (occurrence: None)
  Receive Date: 20140623
  Receipt Date: 20141008
  Transmission Date: 20150528
  Serious: Yes (Hospitalization)
  Sender: FDA-Public Use
  Company Number: US-001060

PATIENT
  Age: 74 Year
  Sex: Male

DRUGS (2)
  1. GATTEX [Suspect]
     Active Substance: TEDUGLUTIDE\WATER
     Indication: SHORT-BOWEL SYNDROME
     Dosage: 0.39 ML, QD, STREN/VOLUM: 0.39 ML/FREQU: ONCE A DAY SUBCUTANEOUS)
     Route: 058
     Dates: start: 20140609, end: 20140609
  2. SOLUTIONS FOR  PARENTERAL NUTRITION [Concomitant]
     Active Substance: AMINO ACIDS\DEXTROSE\ELECTROLYTES NOS

REACTIONS (4)
  - Catheter site pain [None]
  - Urinary retention [None]
  - Device leakage [None]
  - Infrequent bowel movements [None]

NARRATIVE: CASE EVENT DATE: 20140609
